FAERS Safety Report 14535204 (Version 3)
Quarter: 2018Q1

REPORT INFORMATION
  Report Type: Spontaneous
  Country: US (occurrence: US)
  Receive Date: 20180215
  Receipt Date: 20180328
  Transmission Date: 20180509
  Serious: No
  Sender: FDA-Public Use
  Company Number: US-TEVA-2018-US-849680

PATIENT
  Age: 64 Year
  Sex: Male

DRUGS (1)
  1. FENTANYL. [Suspect]
     Active Substance: FENTANYL
     Indication: BACK PAIN

REACTIONS (5)
  - Drug prescribing error [Unknown]
  - Withdrawal syndrome [Unknown]
  - Walking aid user [Unknown]
  - Product adhesion issue [Unknown]
  - Muscle twitching [Unknown]
